FAERS Safety Report 10011478 (Version 2)
Quarter: 2014Q2

REPORT INFORMATION
  Report Type: Report from Study
  Country: JP (occurrence: JP)
  Receive Date: 20140314
  Receipt Date: 20140512
  Transmission Date: 20141212
  Serious: Yes (Death, Life-Threatening)
  Sender: FDA-Public Use
  Company Number: JP-EISAI INC-E2020-13651-SOL-JP

PATIENT
  Age: 103 Year
  Sex: Male

DRUGS (7)
  1. ARICEPT [Suspect]
     Indication: DEMENTIA ALZHEIMER^S TYPE
     Route: 048
     Dates: start: 20130910, end: 20131007
  2. MEMARY [Suspect]
     Indication: DEMENTIA ALZHEIMER^S TYPE
     Route: 048
     Dates: start: 20130924, end: 20131007
  3. RISPERIDONE [Concomitant]
  4. DIOVAN [Concomitant]
  5. ALDACTONE A [Concomitant]
  6. BESACOLIN [Concomitant]
  7. MAGMITT [Concomitant]

REACTIONS (2)
  - Decreased appetite [Not Recovered/Not Resolved]
  - Marasmus [Fatal]
